FAERS Safety Report 15231071 (Version 10)
Quarter: 2018Q4

REPORT INFORMATION
  Report Type: Spontaneous
  Country: US (occurrence: US)
  Receive Date: 20180802
  Receipt Date: 20181219
  Transmission Date: 20190204
  Serious: Yes (Disabling, Other)
  Sender: FDA-Public Use
  Company Number: US-AMGEN-USASP2018048229

PATIENT
  Age: 81 Year
  Sex: Female

DRUGS (5)
  1. VITAMIN B [Concomitant]
     Active Substance: VITAMIN B
     Dosage: UNK
  2. PROLIA [Suspect]
     Active Substance: DENOSUMAB
     Indication: OSTEOPOROSIS POSTMENOPAUSAL
     Dosage: 60 MG, Q6MO
     Route: 065
     Dates: start: 2012
  3. PROLIA [Suspect]
     Active Substance: DENOSUMAB
     Dosage: 60 MG, Q6MO
     Route: 065
     Dates: start: 201805
  4. MULTIVITAMINS [Concomitant]
     Active Substance: VITAMINS
     Dosage: UNK
  5. VITAMIN D3 [Concomitant]
     Active Substance: CHOLECALCIFEROL
     Dosage: UNK

REACTIONS (27)
  - Bone density decreased [Recovered/Resolved]
  - Tooth disorder [Unknown]
  - Gait disturbance [Unknown]
  - Feeling abnormal [Unknown]
  - Ill-defined disorder [Not Recovered/Not Resolved]
  - Total lung capacity decreased [Unknown]
  - Mobility decreased [Recovering/Resolving]
  - Spinal compression fracture [Recovering/Resolving]
  - C-telopeptide increased [Unknown]
  - Hypophagia [Unknown]
  - Abdominal distension [Not Recovered/Not Resolved]
  - Gastritis [Unknown]
  - Drug effect incomplete [Unknown]
  - Drug clearance increased [Unknown]
  - Constipation [Unknown]
  - Weight decreased [Unknown]
  - Body height decreased [Not Recovered/Not Resolved]
  - Spinal deformity [Unknown]
  - Breast mass [Unknown]
  - Immune system disorder [Unknown]
  - Formication [Unknown]
  - Inappropriate schedule of product administration [Unknown]
  - Weight bearing difficulty [Unknown]
  - Bone decalcification [Unknown]
  - Blood calcium increased [Unknown]
  - Muscle spasms [Unknown]
  - Pruritus [Recovering/Resolving]

NARRATIVE: CASE EVENT DATE: 2018
